FAERS Safety Report 6177300-0 (Version None)
Quarter: 2009Q2

REPORT INFORMATION
  Report Type: 
  Country: None (occurrence: None)
  Receive Date: 20090430
  Receipt Date: 20090430
  Transmission Date: 20091009
  Serious: Yes (Other)
  Sender: FDA-Public Use
  Company Number: None

PATIENT
  Age: 61 Year
  Sex: Female
  Weight: 36.2878 kg

DRUGS (1)
  1. ACTIQ [Suspect]
     Indication: MUSCULAR DYSTROPHY
     Dosage: 1600 MCG 6 TIMES DAILY SL
     Route: 060
     Dates: start: 20090201, end: 20090205

REACTIONS (4)
  - BREAKTHROUGH PAIN [None]
  - DRUG WITHDRAWAL SYNDROME [None]
  - PRODUCT QUALITY ISSUE [None]
  - UNDERDOSE [None]
